FAERS Safety Report 21700564 (Version 1)
Quarter: 2022Q4

REPORT INFORMATION
  Report Type: Spontaneous
  Country: US (occurrence: None)
  Receive Date: 20221207
  Receipt Date: 20221207
  Transmission Date: 20230112
  Serious: No
  Sender: FDA-Public Use
  Company Number: None

PATIENT
  Sex: Female

DRUGS (1)
  1. KISQALI FEMARA CO-PACK [Suspect]
     Active Substance: LETROZOLE\RIBOCICLIB
     Indication: Breast cancer
     Dosage: OTHER QUANTITY : 600/2.5MG ;?FREQUENCY : DAILY;?
     Route: 048
     Dates: start: 20221114

REACTIONS (2)
  - Nausea [None]
  - Pain in extremity [None]
